FAERS Safety Report 16883084 (Version 1)
Quarter: 2019Q4

REPORT INFORMATION
  Report Type: Spontaneous
  Country: US (occurrence: US)
  Receive Date: 20191004
  Receipt Date: 20191004
  Transmission Date: 20200122
  Serious: Yes (Hospitalization, Other)
  Sender: FDA-Public Use
  Company Number: US-SA-2019SA271114

PATIENT
  Age: 67 Year
  Sex: Male

DRUGS (17)
  1. XALATAN [Concomitant]
     Active Substance: LATANOPROST
     Dosage: UNK
     Dates: start: 20190331
  2. INFIGRATINIB [Suspect]
     Active Substance: INFIGRATINIB
     Dosage: 100 MG, QD
     Route: 048
     Dates: start: 20190212
  3. FLONASE [Concomitant]
     Active Substance: FLUTICASONE PROPIONATE
  4. MICOTIN [OXICONAZOLE NITRATE] [Concomitant]
  5. ULTRAM [Concomitant]
     Active Substance: TRAMADOL HYDROCHLORIDE
  6. VANCOCIN [Concomitant]
     Active Substance: VANCOMYCIN HYDROCHLORIDE
  7. MIRALAX [Concomitant]
     Active Substance: POLYETHYLENE GLYCOL 3350
  8. AMLODIPINE [Concomitant]
     Active Substance: AMLODIPINE BESYLATE
  9. MAGNESIUM [Concomitant]
     Active Substance: MAGNESIUM
  10. MAXIPIME [Concomitant]
     Active Substance: CEFEPIME HYDROCHLORIDE
     Dosage: UNK
     Dates: start: 20190331
  11. ELIQUIS [Concomitant]
     Active Substance: APIXABAN
     Dosage: UNK
     Dates: start: 20190331
  12. POLYSPORIN [GRAMICIDIN;POLYMYXIN B SULFATE] [Concomitant]
     Active Substance: GRAMICIDIN\POLYMYXIN B
     Dosage: UNK
     Dates: start: 20190331
  13. ATORVASTATIN [Concomitant]
     Active Substance: ATORVASTATIN
     Dosage: UNK
     Dates: start: 2011
  14. MILK OF MAGNESIA [Concomitant]
     Active Substance: MAGNESIUM HYDROXIDE
  15. RENVELA [Suspect]
     Active Substance: SEVELAMER CARBONATE
  16. NORVASC [Concomitant]
     Active Substance: AMLODIPINE BESYLATE
     Dosage: UNK
     Dates: start: 20190331
  17. LATANOPROST. [Concomitant]
     Active Substance: LATANOPROST
     Dosage: UNK
     Dates: start: 201905

REACTIONS (4)
  - Nausea [Recovered/Resolved]
  - Biliary abscess [Recovered/Resolved]
  - Vomiting [Recovered/Resolved]
  - Pyrexia [Recovering/Resolving]

NARRATIVE: CASE EVENT DATE: 20190325
